FAERS Safety Report 6584698-8 (Version None)
Quarter: 2010Q1

REPORT INFORMATION
  Report Type: 
  Country: None (occurrence: None)
  Receive Date: 20100217
  Receipt Date: 20100205
  Transmission Date: 20100710
  Serious: Yes (Hospitalization)
  Sender: FDA-Public Use
  Company Number: PHHY2010FR06682

PATIENT
  Sex: Male

DRUGS (1)
  1. TEGRETOL [Suspect]
     Dosage: 600 MG DAILY
     Dates: start: 20100106

REACTIONS (5)
  - COMA [None]
  - DRUG LEVEL INCREASED [None]
  - DRUG PRESCRIBING ERROR [None]
  - LUNG DISORDER [None]
  - OVERDOSE [None]
